FAERS Safety Report 25619284 (Version 1)
Quarter: 2025Q3

REPORT INFORMATION
  Report Type: Spontaneous
  Country: US (occurrence: US)
  Receive Date: 20250729
  Receipt Date: 20250729
  Transmission Date: 20251020
  Serious: Yes (Other)
  Sender: MYLAN
  Company Number: US-MYLANLABS-2025M1062367

PATIENT
  Age: 50 Year

DRUGS (8)
  1. MYCOPHENOLATE MOFETIL [Suspect]
     Active Substance: MYCOPHENOLATE MOFETIL
     Indication: Pulmonary fibrosis
  2. MYCOPHENOLATE MOFETIL [Suspect]
     Active Substance: MYCOPHENOLATE MOFETIL
     Route: 065
  3. MYCOPHENOLATE MOFETIL [Suspect]
     Active Substance: MYCOPHENOLATE MOFETIL
     Route: 065
  4. MYCOPHENOLATE MOFETIL [Suspect]
     Active Substance: MYCOPHENOLATE MOFETIL
  5. PIRFENIDONE [Suspect]
     Active Substance: PIRFENIDONE
     Indication: Pulmonary fibrosis
  6. PIRFENIDONE [Suspect]
     Active Substance: PIRFENIDONE
     Route: 065
  7. PIRFENIDONE [Suspect]
     Active Substance: PIRFENIDONE
     Route: 065
  8. PIRFENIDONE [Suspect]
     Active Substance: PIRFENIDONE

REACTIONS (2)
  - Drug ineffective for unapproved indication [Unknown]
  - Off label use [Unknown]
